FAERS Safety Report 19960282 (Version 1)
Quarter: 2021Q4

REPORT INFORMATION
  Report Type: Spontaneous
  Country: JP (occurrence: JP)
  Receive Date: 20211015
  Receipt Date: 20211015
  Transmission Date: 20220304
  Serious: Yes (Hospitalization)
  Sender: FDA-Public Use
  Company Number: JP-DSJP-DSJ-2021-133893

PATIENT

DRUGS (1)
  1. ENHERTU [Suspect]
     Active Substance: FAM-TRASTUZUMAB DERUXTECAN-NXKI
     Indication: Breast cancer
     Dosage: 5.4 MG, ONCE EVERY 3 WK
     Route: 041
     Dates: start: 20200907, end: 20210826

REACTIONS (4)
  - Metastases to central nervous system [Unknown]
  - Cerebral infarction [Unknown]
  - Hemiplegia [Unknown]
  - Language disorder [Unknown]
